FAERS Safety Report 12139808 (Version 1)
Quarter: 2016Q1

REPORT INFORMATION
  Report Type: Report from Study
  Country: MX (occurrence: MX)
  Receive Date: 20160303
  Receipt Date: 20160303
  Transmission Date: 20160526
  Serious: Yes (Hospitalization)
  Sender: FDA-Public Use
  Company Number: PHHY2016MX026187

PATIENT
  Age: 82 Year
  Sex: Male

DRUGS (2)
  1. ULTIBRO BREEZHALER [Suspect]
     Active Substance: GLYCOPYRRONIUM\INDACATEROL
     Dosage: 1 DF (110/50 UG), QD (WHEN PATIENT HAD INSUFFICIENCY)
     Route: 065
     Dates: end: 20160115
  2. ULTIBRO BREEZHALER [Suspect]
     Active Substance: GLYCOPYRRONIUM\INDACATEROL
     Indication: RESPIRATORY FAILURE
     Dosage: 2 DF, QD
     Route: 055
     Dates: start: 2015

REACTIONS (4)
  - Condition aggravated [Recovered/Resolved]
  - Limb discomfort [Unknown]
  - Respiratory failure [Recovered/Resolved]
  - Off label use [Recovered/Resolved]

NARRATIVE: CASE EVENT DATE: 2015
